FAERS Safety Report 25307719 (Version 1)
Quarter: 2025Q2

REPORT INFORMATION
  Report Type: Spontaneous
  Country: US (occurrence: US)
  Receive Date: 20250513
  Receipt Date: 20250513
  Transmission Date: 20250717
  Serious: Yes (Other)
  Sender: PFIZER
  Company Number: US-PFIZER INC-202500098498

PATIENT
  Sex: Female

DRUGS (3)
  1. ANIDULAFUNGIN [Suspect]
     Active Substance: ANIDULAFUNGIN
     Indication: Candida infection
  2. POSACONAZOLE [Suspect]
     Active Substance: POSACONAZOLE
     Indication: Candida infection
  3. GENTIAN VIOLET [Suspect]
     Active Substance: GENTIAN VIOLET
     Indication: Candida infection

REACTIONS (3)
  - Drug ineffective [Recovered/Resolved]
  - Vaginal discharge [Recovered/Resolved]
  - Vaginal lesion [Recovered/Resolved]
